FAERS Safety Report 4669175-3 (Version None)
Quarter: 2005Q2

REPORT INFORMATION
  Report Type: 
  Country: None (occurrence: None)
  Receive Date: 20050519
  Receipt Date: 20050509
  Transmission Date: 20051028
  Serious: Yes (Other)
  Sender: FDA-Public Use
  Company Number: 2005-05-0433

PATIENT
  Age: 47 Year
  Sex: Male
  Weight: 124 kg

DRUGS (5)
  1. TEMOXOL (TEMOZOLOMIDE) CAPSULES [Suspect]
     Indication: GLIOBLASTOMA
     Dosage: 180-500MG ORAL
     Route: 048
     Dates: start: 20050119, end: 20050408
  2. PHENYTOIN [Concomitant]
  3. DECADRON [Concomitant]
  4. FOSINOPRIL/HYDROCHLOROTHIAZIDE [Concomitant]
  5. ALLOPURINOL [Concomitant]

REACTIONS (6)
  - ALANINE AMINOTRANSFERASE INCREASED [None]
  - ASPARTATE AMINOTRANSFERASE INCREASED [None]
  - BLOOD ALKALINE PHOSPHATASE INCREASED [None]
  - BLOOD LACTATE DEHYDROGENASE INCREASED [None]
  - FLANK PAIN [None]
  - GAMMA-GLUTAMYLTRANSFERASE INCREASED [None]
